FAERS Safety Report 18307026 (Version 1)
Quarter: 2020Q3

REPORT INFORMATION
  Report Type: Report from Study
  Country: FI (occurrence: FI)
  Receive Date: 20200924
  Receipt Date: 20200924
  Transmission Date: 20201103
  Serious: Yes (Hospitalization)
  Sender: FDA-Public Use
  Company Number: FI-MYLANLABS-2020M1076715

PATIENT
  Sex: Male

DRUGS (2)
  1. LEPONEX [Suspect]
     Active Substance: CLOZAPINE
     Dosage: GRADUALLY ELEVATED UP TO 225 MG.
     Dates: start: 2009, end: 20090624
  2. LEPONEX [Suspect]
     Active Substance: CLOZAPINE
     Indication: SCHIZOPHRENIA
     Dosage: UNK
     Dates: start: 20090527, end: 2009

REACTIONS (15)
  - C-reactive protein increased [Recovered/Resolved]
  - Pyrexia [Recovered/Resolved]
  - Vomiting [Recovered/Resolved]
  - Pleural fluid analysis abnormal [Recovered/Resolved]
  - Oxygen saturation decreased [Recovered/Resolved]
  - Headache [Recovered/Resolved]
  - General physical condition abnormal [Recovered/Resolved]
  - Neutrophil count increased [Recovered/Resolved]
  - Eosinophilia [Recovered/Resolved]
  - Nasopharyngitis [Recovered/Resolved]
  - Diarrhoea [Recovered/Resolved]
  - Oedema mucosal [Recovered/Resolved]
  - Nausea [Recovered/Resolved]
  - Dermatitis [Recovered/Resolved]
  - White blood cell count increased [Recovered/Resolved]

NARRATIVE: CASE EVENT DATE: 200906
